FAERS Safety Report 11793475 (Version 1)
Quarter: 2015Q4

REPORT INFORMATION
  Report Type: Spontaneous
  Country: US (occurrence: None)
  Receive Date: 20151201
  Receipt Date: 20151201
  Transmission Date: 20160305
  Serious: Yes (Life-Threatening, Hospitalization)
  Sender: FDA-Public Use
  Company Number: None

PATIENT
  Age: 54 Year
  Sex: Male

DRUGS (2)
  1. CANAGLIFLOZIN 300 MG [Suspect]
     Active Substance: CANAGLIFLOZIN
     Indication: DIABETES MELLITUS
     Route: 048
  2. INVOKANA [Concomitant]
     Active Substance: CANAGLIFLOZIN

REACTIONS (5)
  - Abdominal pain [None]
  - Vomiting [None]
  - Blood glucose increased [None]
  - Diabetic ketoacidosis [None]
  - Nausea [None]

NARRATIVE: CASE EVENT DATE: 20151127
